FAERS Safety Report 15647427 (Version 1)
Quarter: 2018Q4

REPORT INFORMATION
  Report Type: Spontaneous
  Country: BE (occurrence: BE)
  Receive Date: 20181122
  Receipt Date: 20181122
  Transmission Date: 20190205
  Serious: Yes (Other)
  Sender: FDA-Public Use
  Company Number: BE-MACLEODS PHARMACEUTICALS US LTD-MAC2018018692

PATIENT

DRUGS (3)
  1. PRAMIPEXOLE. [Suspect]
     Active Substance: PRAMIPEXOLE
     Indication: PARKINSON^S DISEASE
     Dosage: 1.5 MILLIGRAM
     Route: 065
  2. RASAGILINE. [Suspect]
     Active Substance: RASAGILINE
     Indication: PARKINSON^S DISEASE
     Dosage: 1 MILLIGRAM
     Route: 065
  3. LEVODOPA [Suspect]
     Active Substance: LEVODOPA
     Indication: PARKINSON^S DISEASE
     Dosage: 62.5 MILLIGRAM, TID, 2 YEARS
     Route: 065

REACTIONS (3)
  - Impulse-control disorder [Unknown]
  - Dyskinesia [Unknown]
  - Paraphilia [Unknown]
